FAERS Safety Report 21811040 (Version 1)
Quarter: 2023Q1

REPORT INFORMATION
  Report Type: Report from Study
  Country: US (occurrence: US)
  Receive Date: 20230103
  Receipt Date: 20230103
  Transmission Date: 20230417
  Serious: Yes (Other)
  Sender: FDA-Public Use
  Company Number: US-ABBVIE-4256012

PATIENT
  Age: 32 Year
  Sex: Female

DRUGS (1)
  1. HUMIRA [Suspect]
     Active Substance: ADALIMUMAB
     Indication: Psoriasis
     Dosage: CF
     Route: 058
     Dates: start: 202109

REACTIONS (9)
  - Limb operation [Unknown]
  - Impaired healing [Not Recovered/Not Resolved]
  - Influenza [Unknown]
  - Pharyngitis streptococcal [Unknown]
  - Herpes simplex [Unknown]
  - Pharyngitis streptococcal [Unknown]
  - Surgery [Not Recovered/Not Resolved]
  - Guttate psoriasis [Unknown]
  - Influenza [Unknown]

NARRATIVE: CASE EVENT DATE: 20220601
